FAERS Safety Report 4283985-6 (Version None)
Quarter: 2004Q1

REPORT INFORMATION
  Report Type: 
  Country: None (occurrence: None)
  Receive Date: 20040202
  Receipt Date: 20040202
  Transmission Date: 20041129
  Serious: No
  Sender: FDA-Public Use
  Company Number: None

PATIENT
  Sex: Female
  Weight: 83.9154 kg

DRUGS (3)
  1. PAXIL [Suspect]
     Indication: DEPRESSION
     Dosage: 20 MG DAILY ORAL
     Route: 048
     Dates: start: 20020101, end: 20040120
  2. PAROXETINE 40 MG APOTEX [Suspect]
     Indication: ANXIETY DISORDER
     Dosage: 20 MG DAILY ORAL
     Route: 048
  3. SYNTHROID [Concomitant]

REACTIONS (9)
  - ANGER [None]
  - DISORIENTATION [None]
  - DISTURBANCE IN ATTENTION [None]
  - DRUG WITHDRAWAL SYNDROME [None]
  - FEELING ABNORMAL [None]
  - INFLUENZA [None]
  - LETHARGY [None]
  - NIGHTMARE [None]
  - SLEEP DISORDER [None]
